FAERS Safety Report 7030602-8 (Version None)
Quarter: 2010Q4

REPORT INFORMATION
  Report Type: 
  Country: None (occurrence: None)
  Receive Date: 20101006
  Receipt Date: 20100927
  Transmission Date: 20110411
  Serious: Yes (Hospitalization)
  Sender: FDA-Public Use
  Company Number: US-ALLERGAN-1012583US

PATIENT
  Age: 21 Year
  Sex: Female

DRUGS (2)
  1. BOTOX [Suspect]
     Indication: HYPERTONIA
     Dosage: 760 UNITS, SINGLE
     Route: 030
  2. BOTOX [Suspect]
     Indication: MOVEMENT DISORDER
     Dosage: 760 UNITS, SINGLE
     Route: 030

REACTIONS (4)
  - DYSPHAGIA [None]
  - DYSSTASIA [None]
  - GAIT DISTURBANCE [None]
  - MUSCULOSKELETAL DISORDER [None]
